FAERS Safety Report 8545147-3 (Version None)
Quarter: 2012Q3

REPORT INFORMATION
  Report Type: 
  Country: None (occurrence: None)
  Receive Date: 20120727
  Receipt Date: 20120725
  Transmission Date: 20120928
  Serious: Yes (Hospitalization)
  Sender: FDA-Public Use
  Company Number: US-ELI_LILLY_AND_COMPANY-US201205005555

PATIENT
  Sex: Female
  Weight: 74.83 kg

DRUGS (5)
  1. NITROGLYCERIN [Concomitant]
  2. LISINOPRIL [Concomitant]
  3. CARVEDILOL [Concomitant]
  4. EFFIENT [Suspect]
     Dosage: UNK
     Dates: start: 20120413
  5. LIPITOR [Concomitant]

REACTIONS (1)
  - CHEST PAIN [None]
